FAERS Safety Report 12067100 (Version 1)
Quarter: 2016Q1

REPORT INFORMATION
  Report Type: Spontaneous
  Country: US (occurrence: None)
  Receive Date: 20160210
  Receipt Date: 20160210
  Transmission Date: 20160526
  Serious: Yes (Other)
  Sender: FDA-Public Use
  Company Number: None

PATIENT
  Age: 61 Year
  Sex: Female
  Weight: 76.2 kg

DRUGS (12)
  1. PRAVASTGATIN [Concomitant]
  2. CYCLOBENZAPRINE [Concomitant]
     Active Substance: CYCLOBENZAPRINE
  3. LOSARTAN. [Concomitant]
     Active Substance: LOSARTAN
  4. LEVOTHYROXINE. [Concomitant]
     Active Substance: LEVOTHYROXINE
  5. HCTZ [Concomitant]
     Active Substance: HYDROCHLOROTHIAZIDE
  6. ASPIRIN. [Concomitant]
     Active Substance: ASPIRIN
  7. ABILIFY [Concomitant]
     Active Substance: ARIPIPRAZOLE
  8. OMEPRAZOLE. [Concomitant]
     Active Substance: OMEPRAZOLE
  9. LANTUS [Concomitant]
     Active Substance: INSULIN GLARGINE
  10. NOVOLOG [Concomitant]
     Active Substance: INSULIN ASPART
  11. SOLU-MEDROL [Suspect]
     Active Substance: METHYLPREDNISOLONE SODIUM SUCCINATE
     Indication: NECK PAIN
     Route: 030
     Dates: start: 20151221
  12. ZOLOFT [Concomitant]
     Active Substance: SERTRALINE HYDROCHLORIDE

REACTIONS (5)
  - Vomiting [None]
  - Pulse absent [None]
  - Seizure [None]
  - Presyncope [None]
  - Unresponsive to stimuli [None]

NARRATIVE: CASE EVENT DATE: 20151221
